FAERS Safety Report 8761388 (Version 1)
Quarter: 2012Q4

REPORT INFORMATION
  Report Type: 
  Country: US (occurrence: US)
  Receive Date: 20120830
  Receipt Date: 20120830
  Transmission Date: 20130627
  Serious: No
  Sender: FDA-Public Use
  Company Number: US-B.I. PHARMACEUTICALS,INC./RIDGEFIELD-2012-BP-20699BP

PATIENT
  Age: 73 Year
  Sex: Female

DRUGS (8)
  1. ZANTAC (RANITIDINE HYDROCHLORIDE) [Suspect]
     Indication: DYSPEPSIA
     Dosage: 75 mg
     Route: 048
     Dates: start: 20120822
  2. DILTIAZEM [Concomitant]
     Indication: HYPERTENSION
     Dosage: 360 mg
     Route: 048
     Dates: start: 2005
  3. METFORMIN [Concomitant]
     Indication: DIABETES MELLITUS
     Dosage: 1000 mg
     Route: 048
     Dates: start: 2005
  4. PROVENTIL [Concomitant]
     Indication: ASTHMA
     Dosage: 2 puf
     Route: 055
     Dates: start: 2007
  5. SIMVASTATIN [Concomitant]
     Indication: BLOOD CHOLESTEROL INCREASED
     Dosage: 40 mg
     Route: 048
     Dates: start: 2005
  6. ATACAND HYDROCHLOROTHIAZIDE [Concomitant]
     Indication: HYPERTENSION
     Route: 048
     Dates: start: 2007
  7. ATACAND HYDROCHLOROTHIAZIDE [Concomitant]
     Route: 048
     Dates: start: 2007
  8. LEVOXYL [Concomitant]
     Indication: HYPOTHYROIDISM
     Dosage: 0.05 mg
     Route: 048
     Dates: start: 201205

REACTIONS (1)
  - Hypertension [Recovered/Resolved]
